FAERS Safety Report 24109967 (Version 1)
Quarter: 2024Q3

REPORT INFORMATION
  Report Type: Report from Study
  Country: US (occurrence: None)
  Receive Date: 20240718
  Receipt Date: 20240718
  Transmission Date: 20241017
  Serious: Yes (Other)
  Sender: ASTRAZENECA
  Company Number: 2021A795392

PATIENT
  Age: 23974 Day
  Sex: Female

DRUGS (1)
  1. LYNPARZA [Suspect]
     Active Substance: OLAPARIB
     Indication: Fallopian tube cancer
     Route: 048
     Dates: start: 20211028

REACTIONS (28)
  - Neuropathy peripheral [Not Recovered/Not Resolved]
  - Foot fracture [Unknown]
  - Fall [Unknown]
  - Tenderness [Not Recovered/Not Resolved]
  - Tremor [Recovering/Resolving]
  - Hyperhidrosis [Not Recovered/Not Resolved]
  - Blood glucose decreased [Recovering/Resolving]
  - Type 1 diabetes mellitus [Unknown]
  - Abdominal pain lower [Not Recovered/Not Resolved]
  - Insomnia [Recovering/Resolving]
  - Back pain [Not Recovered/Not Resolved]
  - Constipation [Recovering/Resolving]
  - Gastrooesophageal reflux disease [Not Recovered/Not Resolved]
  - Fatigue [Not Recovered/Not Resolved]
  - Asthenia [Recovering/Resolving]
  - Dizziness [Not Recovered/Not Resolved]
  - Taste disorder [Not Recovered/Not Resolved]
  - Nausea [Recovering/Resolving]
  - Red blood cell count decreased [Recovered/Resolved]
  - Urinary tract infection [Recovering/Resolving]
  - White blood cell count [Recovered/Resolved]
  - Pain [Unknown]
  - Dry mouth [Unknown]
  - Dizziness [Unknown]
  - Abdominal distension [Unknown]
  - Diplopia [Unknown]
  - Groin pain [Not Recovered/Not Resolved]
  - Middle insomnia [Unknown]
